FAERS Safety Report 6839460-5 (Version None)
Quarter: 2010Q3

REPORT INFORMATION
  Report Type: 
  Country: None (occurrence: None)
  Receive Date: 20100714
  Receipt Date: 20090617
  Transmission Date: 20110219
  Serious: No
  Sender: FDA-Public Use
  Company Number: A0793143A

PATIENT
  Age: 84 Year
  Sex: Male

DRUGS (4)
  1. FLOVENT [Suspect]
     Dates: start: 20090505
  2. AVANDIA [Concomitant]
  3. METFORMIN HCL [Concomitant]
  4. FLOVENT [Concomitant]

REACTIONS (2)
  - DRUG INEFFECTIVE [None]
  - OFF LABEL USE [None]
